FAERS Safety Report 11966087 (Version 1)
Quarter: 2016Q1

REPORT INFORMATION
  Report Type: Spontaneous
  Country: US (occurrence: None)
  Receive Date: 20160126
  Receipt Date: 20160126
  Transmission Date: 20160526
  Serious: Yes (Hospitalization, Other)
  Sender: FDA-Public Use
  Company Number: None

PATIENT
  Age: 63 Year
  Sex: Female
  Weight: 85.73 kg

DRUGS (5)
  1. DIOVON [Concomitant]
  2. VALSARTAN N 80 MG CAMBER PHA [Suspect]
     Active Substance: VALSARTAN
     Indication: CARDIOMEGALY
     Dosage: 1 PILL
     Route: 048
     Dates: start: 20151126, end: 20160122
  3. THYROID [Concomitant]
     Active Substance: LEVOTHYROXINE\LIOTHYRONINE
  4. PREMARIN [Concomitant]
     Active Substance: ESTROGENS, CONJUGATED
  5. CALCIUM [Concomitant]
     Active Substance: CALCIUM

REACTIONS (10)
  - Gastric disorder [None]
  - Alopecia [None]
  - Back pain [None]
  - Pain [None]
  - No therapeutic response [None]
  - Gait disturbance [None]
  - Bladder disorder [None]
  - Product substitution issue [None]
  - Eye disorder [None]
  - Infection [None]

NARRATIVE: CASE EVENT DATE: 20160123
